FAERS Safety Report 6849682-5 (Version None)
Quarter: 2010Q3

REPORT INFORMATION
  Report Type: 
  Country: None (occurrence: None)
  Receive Date: 20100716
  Receipt Date: 20071001
  Transmission Date: 20110219
  Serious: No
  Sender: FDA-Public Use
  Company Number: US-PFIZER INC-2007083970

PATIENT
  Sex: Female
  Weight: 59.1 kg

DRUGS (11)
  1. CHANTIX [Suspect]
     Indication: SMOKING CESSATION THERAPY
     Route: 048
     Dates: start: 20070901
  2. FENTANYL [Interacting]
     Indication: BACK PAIN
     Dosage: 1 EVERY 48 HOURS
  3. KLONOPIN [Interacting]
     Indication: ANXIETY
  4. PHOSLO [Concomitant]
  5. LEVOTHYROXINE SODIUM [Concomitant]
  6. DOCUSATE [Concomitant]
  7. CYMBALTA [Concomitant]
  8. PROTONIX [Concomitant]
  9. ZETIA [Concomitant]
  10. VITAMIN B-COMPLEX WITH VITAMIN C [Concomitant]
  11. METOPROLOL SUCCINATE [Concomitant]

REACTIONS (7)
  - DRUG INTERACTION [None]
  - DYSGEUSIA [None]
  - INHIBITORY DRUG INTERACTION [None]
  - NAUSEA [None]
  - OVARIAN INFECTION [None]
  - RHINORRHOEA [None]
  - VOMITING [None]
